FAERS Safety Report 12204522 (Version 9)
Quarter: 2016Q4

REPORT INFORMATION
  Report Type: Spontaneous
  Country: US (occurrence: US)
  Receive Date: 20160323
  Receipt Date: 20161025
  Transmission Date: 20170207
  Serious: No
  Sender: FDA-Public Use
  Company Number: US-PFIZER INC-2016158418

PATIENT
  Age: 69 Year
  Sex: Male
  Weight: 117 kg

DRUGS (15)
  1. COZAAR [Concomitant]
     Active Substance: LOSARTAN POTASSIUM
     Dosage: 50 MG (1 TABLET), DAILY
     Route: 048
     Dates: start: 201406
  2. PEPCID [Concomitant]
     Active Substance: FAMOTIDINE
     Dosage: 40 MG, DAILY, (1 TABLET )
     Route: 048
  3. SUTENT [Suspect]
     Active Substance: SUNITINIB MALATE
     Indication: RENAL CELL CARCINOMA STAGE IV
     Dosage: 50 MG, CYCLIC (2 CAPSULES ONCE A DAY 4 WEEKS ON 2 WEEKS OFF)(28 DAYS ON 14 DAYS OFF)
     Route: 048
     Dates: start: 20160224
  4. VITAMIN D [Concomitant]
     Active Substance: CHOLECALCIFEROL
     Dosage: UNK, (5000 UNITS ORAL CAP)
     Route: 048
  5. ZOFRAN ODT [Concomitant]
     Active Substance: ONDANSETRON HYDROCHLORIDE
     Indication: NAUSEA
     Dosage: 8 MG, AS NEEDED, (TAKE 1 TABLET BY MOUTH EVERY 8 HOURS)
     Route: 048
  6. HYDROCHLOROTHIAZIDE. [Concomitant]
     Active Substance: HYDROCHLOROTHIAZIDE
     Dosage: 12.5 MG (1 CAPSULE), DAILY
     Route: 048
     Dates: start: 200204
  7. VITAMIN D [Concomitant]
     Active Substance: CHOLECALCIFEROL
     Dosage: 1 DF (1 TABLET), DAILY
     Route: 048
     Dates: start: 200506
  8. ASPIRIN 81 [Concomitant]
     Active Substance: ASPIRIN
     Dosage: 81 MG, DAILY
     Route: 048
  9. METRONIDAZOLE. [Concomitant]
     Active Substance: METRONIDAZOLE
     Dosage: 0.75 %, 2X/DAY, (0.75% APPLY EXTERNALLY, USE TWICE A DAY TO THE AFFECTED AREA)
     Route: 061
  10. MULTIPLE VITAMINS WITH MINERALS [Concomitant]
     Dosage: UNK UNK, 1X/DAY, (ONE-A-DAY VITACRAVES OR, 1 TABLET )
     Route: 048
  11. LOSARTAN POTASSIUM. [Concomitant]
     Active Substance: LOSARTAN POTASSIUM
     Dosage: 50 MG, DAILY, (1 TABLET )
     Route: 048
  12. AMLODIPINE BESYLATE. [Concomitant]
     Active Substance: AMLODIPINE BESYLATE
     Dosage: 10 MG (1 TABLET), DAILY
     Route: 048
     Dates: start: 200204
  13. ASPIRIN /00002701/ [Concomitant]
     Active Substance: ASPIRIN
     Dosage: 325 MG (1 TABLET), DAILY
     Route: 048
     Dates: start: 200204
  14. SIMVASTATIN. [Concomitant]
     Active Substance: SIMVASTATIN
     Dosage: 20 MG, DAILY (ONE TABLET DAILY AT 5 PM)
     Route: 048
     Dates: start: 200204
  15. SIMVASTATIN. [Concomitant]
     Active Substance: SIMVASTATIN
     Dosage: 20 MG, DAILY (TAKE ONE TABLET BY MOUTH EVERY DAY AT 5 PM)
     Route: 048

REACTIONS (10)
  - Abdominal distension [Recovered/Resolved]
  - Rash [Recovered/Resolved]
  - Nausea [Recovered/Resolved]
  - Pyrexia [Recovered/Resolved]
  - Dysgeusia [Not Recovered/Not Resolved]
  - Glossodynia [Unknown]
  - Abdominal tenderness [Not Recovered/Not Resolved]
  - Hyperhidrosis [Recovered/Resolved]
  - Oropharyngeal pain [Unknown]
  - Dry skin [Unknown]

NARRATIVE: CASE EVENT DATE: 2016
